FAERS Safety Report 9131994 (Version 1)
Quarter: 2013Q1

REPORT INFORMATION
  Report Type: Other
  Country: GB (occurrence: GB)
  Receive Date: 20130301
  Receipt Date: 20130301
  Transmission Date: 20140127
  Serious: Yes (Other)
  Sender: FDA-Public Use
  Company Number: GB-WATSON-2013-02890

PATIENT
  Age: 78 Year
  Sex: Male
  Weight: 95 kg

DRUGS (13)
  1. METFORMIN HYDROCHLORIDE (UNKNOWN) [Suspect]
     Indication: TYPE 2 DIABETES MELLITUS
     Dosage: 500 MG, DAILY. DOSE TITRATED TAKEM FOR ONE WEEK
     Route: 065
     Dates: start: 20121010
  2. METFORMIN HYDROCHLORIDE (UNKNOWN) [Suspect]
     Dosage: 2 TABLETS DAILY; DOSE TITRATED - TAKEN FOR ONE WEEK AND THEN INCREASED
     Route: 065
  3. METFORMIN HYDROCHLORIDE (UNKNOWN) [Suspect]
     Dosage: 3 TABLET DAILY; DOSE TITRATED - LEVEL REACHED AFTER 3 WEEKS
     Route: 065
  4. METFORMIN HYDROCHLORIDE (UNKNOWN) [Suspect]
     Dosage: 1 TABLET DAILY; SECOND DOSE TITRATION - INCREASED AFTER A WEEK
     Route: 065
  5. METFORMIN HYDROCHLORIDE (UNKNOWN) [Suspect]
     Dosage: 2 TABLET DAILY; SECOND DOSE TITRATION-INCREASED AFTER A WEEK
     Route: 065
  6. METFORMIN HYDROCHLORIDE (UNKNOWN) [Suspect]
     Dosage: 3 TABLET DAILY; SECOND DOSE TITRATION-LEVEL REACHED AFTER 3 WEEKS
     Route: 065
  7. PROPRANOLOL [Concomitant]
     Indication: PRODUCT USED FOR UNKNOWN INDICATION
     Dosage: 20 MG, BID, 40 MG DAILY
     Route: 065
  8. OMEPRAZOLE [Concomitant]
     Indication: PROPHYLAXIS AGAINST GASTROINTESTINAL ULCER
     Dosage: 40 MG, DAILY
     Route: 065
  9. RAMIPRIL [Concomitant]
     Indication: PRODUCT USED FOR UNKNOWN INDICATION
     Dosage: 2.5 MG, DAILY
     Route: 048
     Dates: start: 20120812
  10. SIMVASTATIN [Concomitant]
     Indication: PRODUCT USED FOR UNKNOWN INDICATION
     Dosage: 20 MG, DAILY
     Route: 048
     Dates: start: 20021112
  11. FELODIPINE [Concomitant]
     Indication: PRODUCT USED FOR UNKNOWN INDICATION
     Dosage: 5 MG, DAILY
     Route: 048
     Dates: start: 20030211
  12. CO-CODAMOL [Concomitant]
     Indication: PRODUCT USED FOR UNKNOWN INDICATION
     Dosage: 15/500 PRN - AS NECESSARY
     Route: 065
  13. FERROUS FUMARATE [Concomitant]
     Indication: PRODUCT USED FOR UNKNOWN INDICATION
     Dosage: 305 MG, DAILY
     Route: 065

REACTIONS (2)
  - Haemorrhage [Recovered/Resolved]
  - Anorectal discomfort [Recovered/Resolved]
